FAERS Safety Report 23934976 (Version 2)
Quarter: 2024Q3

REPORT INFORMATION
  Report Type: Report from Study
  Country: US (occurrence: US)
  Receive Date: 20240604
  Receipt Date: 20240820
  Transmission Date: 20241016
  Serious: Yes (Hospitalization, Other)
  Sender: ABBVIE
  Company Number: US-ABBVIE-5784095

PATIENT
  Sex: Female

DRUGS (1)
  1. SKYRIZI [Suspect]
     Active Substance: RISANKIZUMAB-RZAA
     Indication: Psoriasis
     Route: 058
     Dates: start: 20220304, end: 20240201

REACTIONS (7)
  - Hepatic cirrhosis [Recovering/Resolving]
  - Renal disorder [Recovering/Resolving]
  - Liver disorder [Recovering/Resolving]
  - Gait inability [Unknown]
  - Aphasia [Unknown]
  - Psoriasis [Not Recovered/Not Resolved]
  - Illness [Unknown]

NARRATIVE: CASE EVENT DATE: 20240101
